FAERS Safety Report 7260140-9 (Version None)
Quarter: 2011Q1

REPORT INFORMATION
  Report Type: 
  Country: None (occurrence: None)
  Receive Date: 20110130
  Receipt Date: 20101007
  Transmission Date: 20110831
  Serious: No
  Sender: FDA-Public Use
  Company Number: US-ABBOTT-10P-163-0676615-00

PATIENT
  Age: 54 Year
  Sex: Male

DRUGS (4)
  1. HUMIRA [Suspect]
     Indication: PSORIASIS
     Dates: start: 20100701
  2. SEROQUEL [Concomitant]
     Indication: PRODUCT USED FOR UNKNOWN INDICATION
     Dosage: AT BEDTIME
  3. COGENTIN [Concomitant]
     Indication: PRODUCT USED FOR UNKNOWN INDICATION
  4. THORAZINE [Concomitant]
     Indication: INSOMNIA
     Dosage: AT BEDTIME AS NEEDED

REACTIONS (1)
  - INJECTION SITE RASH [None]
